FAERS Safety Report 6426100-2 (Version None)
Quarter: 2009Q4

REPORT INFORMATION
  Report Type: 
  Country: None (occurrence: None)
  Receive Date: 20091103
  Receipt Date: 20091103
  Transmission Date: 20100525
  Serious: No
  Sender: FDA-Public Use
  Company Number: None

PATIENT
  Age: 50 Year
  Sex: Female
  Weight: 56.246 kg

DRUGS (1)
  1. LEVAQUIN [Suspect]
     Indication: URINARY TRACT INFECTION
     Dosage: 500 MG 1 QD PO
     Route: 048
     Dates: start: 20091013, end: 20091016

REACTIONS (7)
  - BURNING SENSATION [None]
  - CARTILAGE INJURY [None]
  - INSOMNIA [None]
  - MYALGIA [None]
  - NEUROPATHY PERIPHERAL [None]
  - PHOTOPHOBIA [None]
  - TENDONITIS [None]
